FAERS Safety Report 5345200-1 (Version None)
Quarter: 2007Q2

REPORT INFORMATION
  Report Type: 
  Country: None (occurrence: None)
  Receive Date: 20070605
  Receipt Date: 20070524
  Transmission Date: 20071010
  Serious: Yes (Other)
  Sender: FDA-Public Use
  Company Number: PHBS2006JP18240

PATIENT
  Age: 73 Year
  Sex: Male

DRUGS (2)
  1. NEORAL [Suspect]
     Indication: PSORIASIS
     Dosage: 100 MG/D
     Route: 048
  2. NEORAL [Suspect]
     Dosage: 150 MG/D
     Route: 048

REACTIONS (2)
  - DIZZINESS [None]
  - FALL [None]
